FAERS Safety Report 6892097-4 (Version None)
Quarter: 2010Q3

REPORT INFORMATION
  Report Type: 
  Country: None (occurrence: None)
  Receive Date: 20100731
  Receipt Date: 20080208
  Transmission Date: 20110219
  Serious: No
  Sender: FDA-Public Use
  Company Number: US-PFIZER INC-2008004872

PATIENT
  Sex: Female
  Weight: 71.8 kg

DRUGS (4)
  1. NORVASC [Suspect]
     Indication: MYOCARDIAL INFARCTION
     Dates: start: 20020101, end: 20071201
  2. NORVASC [Suspect]
     Indication: ARTERIAL OCCLUSIVE DISEASE
  3. ATENOLOL [Concomitant]
  4. ACIPHEX [Concomitant]

REACTIONS (1)
  - GINGIVAL BLISTER [None]
